FAERS Safety Report 9026657 (Version 9)
Quarter: 2014Q2

REPORT INFORMATION
  Report Type: Spontaneous
  Country: US (occurrence: US)
  Receive Date: 20130123
  Receipt Date: 20140528
  Transmission Date: 20141212
  Serious: Yes (Hospitalization, Other)
  Sender: FDA-Public Use
  Company Number: US-009507513-1301USA010135

PATIENT
  Sex: Female
  Weight: 79.82 kg

DRUGS (16)
  1. FOSAMAX [Suspect]
     Indication: OSTEOPOROSIS
     Dosage: 10 MG, QD
     Route: 048
     Dates: start: 2000, end: 20010109
  2. FOSAMAX [Suspect]
     Dosage: 70 MG, QW
     Route: 048
     Dates: start: 20010109, end: 20040628
  3. FOSAMAX [Suspect]
     Dosage: 70 MG, QW
     Route: 048
     Dates: start: 20070627
  4. ALENDRONATE SODIUM [Suspect]
     Indication: OSTEOPOROSIS
     Dosage: 70 MG, QW
     Route: 048
     Dates: end: 200904
  5. VITAMINS (UNSPECIFIED) [Concomitant]
     Dosage: ONE DAILY
     Route: 048
     Dates: start: 1980
  6. CALCIUM (UNSPECIFIED) [Concomitant]
     Dosage: 1200 MG, QD
     Dates: start: 1980
  7. ESTRADIOL [Concomitant]
     Indication: HORMONE REPLACEMENT THERAPY
     Dosage: UNK
     Dates: start: 1995, end: 2007
  8. BONIVA [Concomitant]
     Indication: OSTEOPOROSIS
     Dosage: 150 MG, QM
     Route: 048
     Dates: start: 20070531, end: 20070627
  9. RANITIDINE [Concomitant]
     Indication: GASTROOESOPHAGEAL REFLUX DISEASE
     Dosage: UNK
     Dates: start: 200505, end: 200905
  10. LEVOTHYROXINE SODIUM [Concomitant]
     Indication: THYROID DISORDER
     Dosage: UNK
     Route: 048
     Dates: start: 1976
  11. PIROXICAM [Concomitant]
     Indication: CREST SYNDROME
     Dosage: 20 MG, QD
     Route: 048
     Dates: start: 20010109, end: 2009
  12. HYDROXYCHLOROQUINE SULFATE [Concomitant]
     Indication: CREST SYNDROME
     Dosage: UNK
     Route: 048
     Dates: start: 1979, end: 20090901
  13. FLONASE [Concomitant]
     Indication: HYPERSENSITIVITY
     Dosage: UNK
     Route: 045
     Dates: start: 2003
  14. NEXIUM [Concomitant]
     Indication: GASTROOESOPHAGEAL REFLUX DISEASE
     Dosage: UNK
     Dates: start: 20080115, end: 200803
  15. PREDNISONE [Concomitant]
     Indication: CREST SYNDROME
     Dosage: UNK
     Dates: start: 200906
  16. PLAQUENIL [Concomitant]
     Indication: CREST SYNDROME
     Dosage: 200 MG, QD-BID

REACTIONS (64)
  - Intramedullary rod insertion [Unknown]
  - Intramedullary rod insertion [Unknown]
  - Medical device removal [Unknown]
  - Cholecystectomy [Unknown]
  - Vitrectomy [Unknown]
  - Inguinal hernia repair [Unknown]
  - Gallbladder operation [Unknown]
  - Cataract operation [Unknown]
  - Spinal fusion surgery [Unknown]
  - Bone graft [Unknown]
  - Hip arthroplasty [Unknown]
  - Open reduction of fracture [Unknown]
  - Bone operation [Unknown]
  - Medical device removal [Unknown]
  - Osteotomy [Unknown]
  - Osteonecrosis [Unknown]
  - Atypical femur fracture [Unknown]
  - Vitamin D deficiency [Unknown]
  - Medical device removal [Unknown]
  - Adverse event [Unknown]
  - Impaired healing [Unknown]
  - Tooth infection [Unknown]
  - Impaired healing [Not Recovered/Not Resolved]
  - Eye infection [Unknown]
  - Spinal column stenosis [Unknown]
  - Dry eye [Unknown]
  - Arrhythmia [Unknown]
  - Adverse event [Unknown]
  - Enterobiasis [Unknown]
  - Fracture nonunion [Unknown]
  - Restless legs syndrome [Unknown]
  - Cellulitis [Unknown]
  - Skin fissures [Unknown]
  - Muscular weakness [Unknown]
  - Spinal osteoarthritis [Unknown]
  - Osteopenia [Unknown]
  - Hypercholesterolaemia [Unknown]
  - Post procedural haemorrhage [Unknown]
  - Cataract [Unknown]
  - Ventricular extrasystoles [Unknown]
  - Mitral valve incompetence [Unknown]
  - Mitral valve prolapse [Unknown]
  - Varicose vein [Unknown]
  - Osteoarthritis [Unknown]
  - Appendicectomy [Unknown]
  - Tonsillectomy [Unknown]
  - Adenoidectomy [Unknown]
  - Cataract operation [Unknown]
  - Bone metabolism disorder [Unknown]
  - Fracture delayed union [Unknown]
  - Pain [Unknown]
  - Limb asymmetry [Unknown]
  - Muscular weakness [Unknown]
  - Myotonia [Unknown]
  - Arthritis [Unknown]
  - Tendonitis [Unknown]
  - Medical device complication [Unknown]
  - Myositis ossificans [Unknown]
  - Myocardial ischaemia [Unknown]
  - Bursitis [Unknown]
  - Arthralgia [Not Recovered/Not Resolved]
  - Urticaria [Not Recovered/Not Resolved]
  - Back pain [Unknown]
  - Drug ineffective [Unknown]
